FAERS Safety Report 10086448 (Version 2)
Quarter: 2014Q2

REPORT INFORMATION
  Report Type: Spontaneous
  Country: US (occurrence: US)
  Receive Date: 20140418
  Receipt Date: 20140602
  Transmission Date: 20141212
  Serious: Yes (Disabling)
  Sender: FDA-Public Use
  Company Number: US-PFIZER INC-2014106320

PATIENT
  Age: 55 Year
  Sex: Male
  Weight: 134 kg

DRUGS (4)
  1. GABAPENTIN [Suspect]
     Indication: DIABETIC NEUROPATHY
     Dosage: 2100 MG (TWO OF 300MG IN MORNING, TWO OF 300MG IN AFTERNOON, THREE OF 300MG AT BED TIME), DAILY
     Route: 048
  2. ATENOLOL [Concomitant]
     Indication: HYPERTENSION
     Dosage: 100 MG, 1X/DAY
  3. METFORMIN [Concomitant]
     Indication: DIABETES MELLITUS
     Dosage: 1000 MG, 2X/DAY
  4. INSULIN [Concomitant]
     Indication: DIABETES MELLITUS
     Dosage: UNK

REACTIONS (3)
  - Fall [Unknown]
  - Limb injury [Unknown]
  - Memory impairment [Unknown]
